FAERS Safety Report 6699770-1 (Version None)
Quarter: 2010Q2

REPORT INFORMATION
  Report Type: 
  Country: None (occurrence: None)
  Receive Date: 20100428
  Receipt Date: 20100420
  Transmission Date: 20101027
  Serious: Yes (Hospitalization, Other)
  Sender: FDA-Public Use
  Company Number: GB-JNJFOC-20100405793

PATIENT
  Age: 73 Year
  Sex: Male

DRUGS (7)
  1. HALOPERIDOL [Suspect]
     Indication: ANTIEMETIC SUPPORTIVE CARE
     Route: 065
  2. CYCLIZINE [Suspect]
     Indication: ANTIEMETIC SUPPORTIVE CARE
     Route: 058
  3. DIAMORPHINE [Suspect]
     Indication: ARTHRALGIA
     Route: 058
  4. DIAMORPHINE [Suspect]
     Route: 058
  5. LEVOMEPROMAZINE [Suspect]
     Indication: ANTIEMETIC SUPPORTIVE CARE
     Route: 065
  6. MORPHINE [Suspect]
     Indication: ARTHRALGIA
     Route: 048
  7. OXYCODONE [Concomitant]
     Indication: PAIN
     Route: 065

REACTIONS (10)
  - CACHEXIA [None]
  - DELIRIUM [None]
  - DIARRHOEA [None]
  - DRUG INEFFECTIVE [None]
  - DRUG TOXICITY [None]
  - HALLUCINATION [None]
  - METASTASES TO LIVER [None]
  - NAUSEA [None]
  - PRURITUS [None]
  - VOMITING [None]
